FAERS Safety Report 10062797 (Version 1)
Quarter: 2014Q1

REPORT INFORMATION
  Report Type: Spontaneous
  Country: US (occurrence: None)
  Receive Date: 20140328
  Receipt Date: 20140328
  Transmission Date: 20141002
  Serious: Yes (Other)
  Sender: FDA-Public Use
  Company Number: CABO-13003780

PATIENT
  Age: 46 Year
  Sex: Female

DRUGS (6)
  1. CALCIUM (CALCIUM, COLECALCIFEROL) [Concomitant]
  2. LEVOTHYROXINE (LEVOTHYROXINE SODIUM) [Concomitant]
  3. AMLDIPINE BESYLATE (AMLODIPINE ESILATE) [Concomitant]
  4. MAGNESIUM (MAGNESIUM) [Concomitant]
  5. CALCITROL (CALCITRIOL) [Concomitant]
  6. COMETRIQ [Suspect]
     Indication: THYROID CANCER
     Route: 048
     Dates: start: 201310, end: 20131021

REACTIONS (1)
  - Pancreatitis [None]
